FAERS Safety Report 15357611 (Version 1)
Quarter: 2018Q3

REPORT INFORMATION
  Report Type: Spontaneous
  Country: CA (occurrence: CA)
  Receive Date: 20180906
  Receipt Date: 20180906
  Transmission Date: 20181010
  Serious: Yes (Death)
  Sender: FDA-Public Use
  Company Number: CA-TEVA-2018-CA-951271

PATIENT
  Age: 53 Year
  Sex: Male
  Weight: 92 kg

DRUGS (3)
  1. DEXTROMETHORPHAN [Suspect]
     Active Substance: DEXTROMETHORPHAN
     Route: 065
  2. DIPHENHYDRAMINE. [Suspect]
     Active Substance: DIPHENHYDRAMINE
     Route: 065
  3. DOXYLAMINE SUCCINATE. [Suspect]
     Active Substance: DOXYLAMINE SUCCINATE
     Route: 065

REACTIONS (2)
  - Postmortem blood drug level increased [Fatal]
  - Toxicity to various agents [Fatal]
